FAERS Safety Report 24314316 (Version 2)
Quarter: 2024Q4

REPORT INFORMATION
  Report Type: Spontaneous
  Country: IT (occurrence: IT)
  Receive Date: 20240912
  Receipt Date: 20241008
  Transmission Date: 20250114
  Serious: Yes (Hospitalization)
  Sender: SANDOZ
  Company Number: IT-MLMSERVICE-20240902-PI177855-00232-1

PATIENT
  Age: 74 Year
  Sex: Male
  Weight: 70 kg

DRUGS (3)
  1. MYCOPHENOLATE MOFETIL [Suspect]
     Active Substance: MYCOPHENOLATE MOFETIL
     Indication: Immunosuppressant drug therapy
     Dosage: 500.000MG BID
     Route: 065
     Dates: start: 201806, end: 202206
  2. TACROLIMUS [Suspect]
     Active Substance: TACROLIMUS
     Dosage: 3.000MG QD
     Route: 065
     Dates: start: 201806, end: 202206
  3. TACROLIMUS [Suspect]
     Active Substance: TACROLIMUS
     Indication: Immunosuppressant drug therapy
     Dosage: DOSAGE WAS ADJUSTED TO MAINTAIN ITS LEVELS BETWEEN 5 TO 8 NG/ML
     Route: 065
     Dates: start: 202206

REACTIONS (6)
  - Thrombocytopenia [Unknown]
  - Wound infection pseudomonas [Recovered/Resolved]
  - Wound infection pseudomonas [Recovered/Resolved]
  - Wound dehiscence [Recovered/Resolved]
  - Impaired healing [Recovered/Resolved]
  - Enterobacter infection [Recovered/Resolved]

NARRATIVE: CASE EVENT DATE: 20220601
